FAERS Safety Report 18454523 (Version 1)
Quarter: 2020Q4

REPORT INFORMATION
  Report Type: Report from Study
  Country: JP (occurrence: JP)
  Receive Date: 20201102
  Receipt Date: 20201102
  Transmission Date: 20210114
  Serious: Yes (Death)
  Sender: FDA-Public Use
  Company Number: JP-JNJFOC-A-US2019-199326

PATIENT
  Age: 67 Year
  Sex: Male

DRUGS (17)
  1. VENTAVIS [Suspect]
     Active Substance: ILOPROST
     Dosage: 5 MCG
     Route: 055
     Dates: start: 20191205, end: 20191205
  2. WARFARIN [Concomitant]
     Active Substance: WARFARIN
     Dates: start: 20190723, end: 20191104
  3. SOTACOR [Concomitant]
     Active Substance: SOTALOL HYDROCHLORIDE
     Dates: start: 20161101
  4. MAINTATE [Concomitant]
     Active Substance: BISOPROLOL FUMARATE
     Dates: start: 20180424
  5. WARFARIN [Concomitant]
     Active Substance: WARFARIN
     Dates: start: 20191105
  6. PREDONINE [Concomitant]
     Active Substance: PREDNISOLONE
     Dates: start: 20191125, end: 20191201
  7. PARIET [Concomitant]
     Active Substance: RABEPRAZOLE SODIUM
     Dates: start: 20140715
  8. LUPRAC [Concomitant]
     Active Substance: TORSEMIDE
     Dates: start: 20191115
  9. PREDONINE [Concomitant]
     Active Substance: PREDNISOLONE
     Dates: start: 20191202
  10. TOLVAPTAN [Concomitant]
     Active Substance: TOLVAPTAN
     Dates: start: 20181106, end: 20190325
  11. REBAMIPIDE [Concomitant]
     Active Substance: REBAMIPIDE
     Dates: start: 20130402
  12. FEBURIC [Concomitant]
     Active Substance: FEBUXOSTAT
     Dates: start: 20161101
  13. VENTAVIS [Suspect]
     Active Substance: ILOPROST
     Indication: PULMONARY ARTERIAL HYPERTENSION
     Dosage: 2.5 MCG
     Route: 055
     Dates: start: 20191205, end: 20191205
  14. TOLVAPTAN [Concomitant]
     Active Substance: TOLVAPTAN
     Dates: start: 20190326
  15. PREDONINE [Concomitant]
     Active Substance: PREDNISOLONE
     Dates: start: 20191118, end: 20191124
  16. OXYGEN. [Concomitant]
     Active Substance: OXYGEN
     Dates: start: 20191023
  17. ULTIBRO BREEZHALER [Concomitant]
     Active Substance: GLYCOPYRRONIUM\INDACATEROL
     Dosage: 1 DF, QD
     Dates: start: 20191118

REACTIONS (1)
  - Death [Fatal]

NARRATIVE: CASE EVENT DATE: 20191206
